FAERS Safety Report 19604204 (Version 1)
Quarter: 2021Q3

REPORT INFORMATION
  Report Type: Spontaneous
  Country: US (occurrence: US)
  Receive Date: 20210723
  Receipt Date: 20210723
  Transmission Date: 20211014
  Serious: No
  Sender: FDA-Public Use
  Company Number: US-BIOGEN-2020BI00866855

PATIENT
  Sex: Female

DRUGS (1)
  1. TECFIDERA [Suspect]
     Active Substance: DIMETHYL FUMARATE
     Indication: MULTIPLE SCLEROSIS
     Route: 065
     Dates: start: 20181105

REACTIONS (4)
  - Drug ineffective [Unknown]
  - Joint dislocation [Not Recovered/Not Resolved]
  - Rhinorrhoea [Unknown]
  - Primary progressive multiple sclerosis [Not Recovered/Not Resolved]
